FAERS Safety Report 9218017 (Version 1)
Quarter: 2013Q2

REPORT INFORMATION
  Report Type: Report from Study
  Country: TW (occurrence: TW)
  Receive Date: 20130408
  Receipt Date: 20130408
  Transmission Date: 20140414
  Serious: Yes (Hospitalization)
  Sender: FDA-Public Use
  Company Number: TW-009507513-2011SP046317

PATIENT
  Age: 43 Year
  Sex: Female
  Weight: 53 kg

DRUGS (7)
  1. ASENAPINE MALEATE-SCHIZOPHRENIA [Suspect]
     Indication: SCHIZOPHRENIA
     Dosage: UNK
     Route: 060
     Dates: start: 20110727, end: 20110907
  2. ASENAPINE MALEATE-SCHIZOPHRENIA [Suspect]
     Dosage: UNK, BID
     Route: 060
     Dates: start: 20110907, end: 20110926
  3. ASENAPINE MALEATE-SCHIZOPHRENIA [Suspect]
     Dosage: UNK, BID
     Route: 060
     Dates: start: 20110907, end: 20110926
  4. ASENAPINE MALEATE-SCHIZOPHRENIA [Suspect]
     Dosage: UNK, BID
     Route: 060
     Dates: start: 20110907, end: 20110926
  5. LORAZEPAM [Concomitant]
     Indication: ANXIETY
     Dosage: DOSE 1.5-3 MILLIGRAM
     Route: 048
     Dates: start: 20110524
  6. SENNOSIDES [Concomitant]
     Indication: CONSTIPATION
     Dosage: DOSE 12-24  MILLIGRAM
     Route: 048
     Dates: start: 20110601
  7. ZOLPIDEM TARTRATE [Concomitant]
     Indication: CONSTIPATION
     Dosage: 6.25 MG, HS
     Route: 048
     Dates: start: 20110615

REACTIONS (1)
  - Schizophrenia [Recovered/Resolved]
